FAERS Safety Report 11841989 (Version 1)
Quarter: 2015Q4

REPORT INFORMATION
  Report Type: Spontaneous
  Country: US (occurrence: US)
  Receive Date: 20151216
  Receipt Date: 20151216
  Transmission Date: 20160305
  Serious: No
  Sender: FDA-Public Use
  Company Number: US-RB-072764-15

PATIENT
  Age: 6 Year
  Sex: Female

DRUGS (2)
  1. TYLENOL [Concomitant]
     Active Substance: ACETAMINOPHEN
     Indication: PRODUCT USED FOR UNKNOWN INDICATION
     Dosage: . DOSING UNKNOWN,FREQUENCY UNK
     Route: 065
  2. DELSYM [Suspect]
     Active Substance: DEXTROMETHORPHAN
     Indication: PRODUCT USED FOR UNKNOWN INDICATION
     Dosage: . PATIENT INGESTED 7.5 ML IN 3 DOSES WITHIN 16 HOURS; TOOK PRODUCT LAST ON 12-JAN-2015.,FREQUENCY UN
     Route: 048
     Dates: start: 20150111

REACTIONS (2)
  - No adverse event [Unknown]
  - Accidental overdose [Unknown]
